FAERS Safety Report 14102661 (Version 1)
Quarter: 2017Q4

REPORT INFORMATION
  Report Type: Spontaneous
  Country: US (occurrence: US)
  Receive Date: 20171018
  Receipt Date: 20171018
  Transmission Date: 20180321
  Serious: No
  Sender: FDA-Public Use
  Company Number: US-BAUSCH-BL-2017-005624

PATIENT
  Age: 60 Year
  Sex: Female

DRUGS (2)
  1. WELLBUTRIN XL [Suspect]
     Active Substance: BUPROPION HYDROCHLORIDE
     Indication: DEPRESSION
     Route: 048
     Dates: start: 201702
  2. BUPROPION HYDROCHLORIDE. [Suspect]
     Active Substance: BUPROPION HYDROCHLORIDE
     Indication: DEPRESSION
     Route: 065
     Dates: start: 201702, end: 201703

REACTIONS (7)
  - Condition aggravated [Recovered/Resolved]
  - Crying [Recovered/Resolved]
  - Dyspnoea [Recovered/Resolved]
  - Lethargy [Recovered/Resolved]
  - Depression [Recovered/Resolved]
  - Unevaluable event [Unknown]
  - Drug ineffective [Unknown]

NARRATIVE: CASE EVENT DATE: 2017
